FAERS Safety Report 23313240 (Version 1)
Quarter: 2023Q4

REPORT INFORMATION
  Report Type: Spontaneous
  Country: US (occurrence: US)
  Receive Date: 20231219
  Receipt Date: 20231219
  Transmission Date: 20240110
  Serious: No
  Sender: FDA-Public Use
  Company Number: US-SA-SAC20231213000080

PATIENT
  Sex: Female

DRUGS (1)
  1. DUPIXENT [Suspect]
     Active Substance: DUPILUMAB
     Indication: Dermatitis atopic
     Dosage: DOSE :300MG/2ML FREQUENCY :INJECT 1 PEN (300MG) SUBCUTANEOUSLY EVERY TWO WEEKS
     Route: 058

REACTIONS (1)
  - Dermatitis atopic [Unknown]
